APPROVED DRUG PRODUCT: NUMORPHAN
Active Ingredient: OXYMORPHONE HYDROCHLORIDE
Strength: 5MG
Dosage Form/Route: SUPPOSITORY;RECTAL
Application: N011738 | Product #004
Applicant: ENDO PHARMACEUTICALS INC
Approved: Approved Prior to Jan 1, 1982 | RLD: No | RS: No | Type: DISCN